FAERS Safety Report 9917566 (Version 3)
Quarter: 2014Q1

REPORT INFORMATION
  Report Type: Spontaneous
  Country: US (occurrence: US)
  Receive Date: 20140221
  Receipt Date: 20140331
  Transmission Date: 20141002
  Serious: Yes (Death)
  Sender: FDA-Public Use
  Company Number: US-INCYTE CORPORATION-2013IN001300

PATIENT
  Age: 82 Year
  Sex: Female

DRUGS (14)
  1. JAKAFI [Suspect]
     Indication: MYELOFIBROSIS
     Dosage: 10 MG, BID
     Route: 048
     Dates: start: 201302
  2. DETROL [Concomitant]
  3. EFFEXOR [Concomitant]
  4. LAMICTAL [Concomitant]
  5. PRILOSEC [Concomitant]
  6. CELEXA [Concomitant]
  7. LORAZEPAM [Concomitant]
  8. LEVOTHYROXINE [Concomitant]
  9. VYTORIN [Concomitant]
  10. LASIX [Concomitant]
  11. SEROQUEL [Concomitant]
  12. TOPROL [Concomitant]
  13. AMBIEN [Concomitant]
  14. SENNA [Concomitant]

REACTIONS (2)
  - Death [Fatal]
  - Night sweats [Not Recovered/Not Resolved]
